FAERS Safety Report 18336326 (Version 1)
Quarter: 2020Q4

REPORT INFORMATION
  Report Type: Spontaneous
  Country: TR (occurrence: TR)
  Receive Date: 20201001
  Receipt Date: 20201001
  Transmission Date: 20210113
  Serious: Yes (Hospitalization)
  Sender: FDA-Public Use
  Company Number: TR-GLAXOSMITHKLINE-TR2020TRK191008

PATIENT
  Age: 73 Year
  Sex: Male

DRUGS (1)
  1. REQUIP XL [Suspect]
     Active Substance: ROPINIROLE HYDROCHLORIDE
     Indication: PARKINSONISM
     Dosage: UNK (ONE WEEK-10 DAYS AGO)

REACTIONS (5)
  - Vein disorder [Not Recovered/Not Resolved]
  - Palpitations [Not Recovered/Not Resolved]
  - Product dose omission issue [Unknown]
  - Product supply issue [Unknown]
  - Gait inability [Not Recovered/Not Resolved]
